FAERS Safety Report 5664391-6 (Version None)
Quarter: 2008Q1

REPORT INFORMATION
  Report Type: 
  Country: None (occurrence: None)
  Receive Date: 20080312
  Receipt Date: 20080225
  Transmission Date: 20080703
  Serious: Yes (Other)
  Sender: FDA-Public Use
  Company Number: DSA_61964_2008

PATIENT
  Age: 6 Year
  Sex: Male

DRUGS (1)
  1. DIASTAT ACUDIAL 20 MG [Suspect]
     Indication: CONVULSION
     Dosage: (20 MG PRN RECTAL)
     Route: 054
     Dates: start: 20080225, end: 20080225

REACTIONS (2)
  - SOMNOLENCE [None]
  - UNRESPONSIVE TO STIMULI [None]
